FAERS Safety Report 6567143-8 (Version None)
Quarter: 2010Q1

REPORT INFORMATION
  Report Type: 
  Country: None (occurrence: None)
  Receive Date: 20100202
  Receipt Date: 20100127
  Transmission Date: 20100710
  Serious: Yes (Death)
  Sender: FDA-Public Use
  Company Number: CH-SANOFI-AVENTIS-2010SA005048

PATIENT
  Age: 24 Year
  Sex: Male
  Weight: 54 kg

DRUGS (3)
  1. LANTUS [Suspect]
     Route: 058
     Dates: end: 20080127
  2. HUMALOG [Suspect]
     Route: 058
     Dates: end: 20080127
  3. MEPHAQUIN [Suspect]
     Indication: MALARIA PROPHYLAXIS
     Route: 048
     Dates: start: 20071217, end: 20080125

REACTIONS (1)
  - SUDDEN DEATH [None]
